FAERS Safety Report 4586551-8 (Version None)
Quarter: 2005Q1

REPORT INFORMATION
  Report Type: 
  Country: None (occurrence: None)
  Receive Date: 20050218
  Receipt Date: 20040316
  Transmission Date: 20050727
  Serious: Yes (Hospitalization)
  Sender: FDA-Public Use
  Company Number: US-BRISTOL-MYERS SQUIBB COMPANY-12534749

PATIENT
  Age: 60 Year
  Sex: Female
  Weight: 58 kg

DRUGS (10)
  1. TAXOL [Suspect]
     Indication: LUNG NEOPLASM MALIGNANT
     Dosage: GIVEN IN 500 ML NORMAL SALINE IN NITROGLYCERIN ADDITIONAL LOT #: 3L71725, EXP. DATE: OCT-2006
     Route: 042
     Dates: start: 20040315, end: 20040315
  2. CARBOPLATIN [Concomitant]
  3. TAGAMET [Concomitant]
     Indication: PREMEDICATION
     Route: 048
  4. DECADRON [Concomitant]
     Indication: PREMEDICATION
     Dosage: 6 + 12 HOURS PRIOR TO PACLITAXEL
     Route: 048
  5. BENADRYL [Concomitant]
     Indication: PREMEDICATION
     Route: 042
  6. ATIVAN [Concomitant]
     Indication: PREMEDICATION
     Route: 042
  7. ATIVAN [Concomitant]
     Indication: NAUSEA
     Route: 042
  8. ANZEMET [Concomitant]
     Indication: PREMEDICATION
     Route: 042
  9. LANSOPRAZOLE [Concomitant]
     Indication: GASTROOESOPHAGEAL REFLUX DISEASE
  10. METHADONE [Concomitant]
     Indication: PAIN

REACTIONS (1)
  - ANAPHYLACTIC SHOCK [None]
